FAERS Safety Report 26217972 (Version 1)
Quarter: 2025Q4

REPORT INFORMATION
  Report Type: Spontaneous
  Country: CN (occurrence: CN)
  Receive Date: 20251231
  Receipt Date: 20251231
  Transmission Date: 20260118
  Serious: Yes (Other)
  Sender: OTSUKA
  Company Number: CN-MMM-Otsuka-4UWFHQCO

PATIENT
  Age: 24 Year
  Sex: Female
  Weight: 70.2 kg

DRUGS (2)
  1. ARIPIPRAZOLE [Suspect]
     Active Substance: ARIPIPRAZOLE
     Indication: Symptomatic treatment
     Dosage: 15 MG, QD
     Route: 061
     Dates: start: 20251003
  2. CLOZAPINE [Suspect]
     Active Substance: CLOZAPINE
     Indication: Symptomatic treatment
     Dosage: 50 MG, BID
     Route: 061
     Dates: start: 20251003

REACTIONS (1)
  - Gaze palsy [Recovering/Resolving]

NARRATIVE: CASE EVENT DATE: 20251114
